FAERS Safety Report 5830537-X (Version None)
Quarter: 2008Q3

REPORT INFORMATION
  Report Type: 
  Country: None (occurrence: None)
  Receive Date: 20080801
  Receipt Date: 20070703
  Transmission Date: 20090109
  Serious: Yes (Other)
  Sender: FDA-Public Use
  Company Number: US-BRISTOL-MYERS SQUIBB COMPANY-13833843

PATIENT
  Age: 49 Year
  Sex: Male
  Weight: 110 kg

DRUGS (17)
  1. COUMADIN [Suspect]
     Indication: CEREBRAL ARTERY STENOSIS
     Dosage: FOR THE LAST 1.5 YEARS: 10 MG DAILY ALTERNATING WITH 12 MG DAILY
  2. HYZAAR [Concomitant]
  3. CELEXA [Concomitant]
  4. ACCUPRIL [Concomitant]
  5. TOPROL-XL [Concomitant]
  6. LASIX [Concomitant]
  7. PROTONIX [Concomitant]
  8. SYNTHROID [Concomitant]
  9. GLUCOVANCE [Concomitant]
  10. DESYRL [Concomitant]
  11. NITROGLYCERIN [Concomitant]
  12. NITROGLYN [Concomitant]
  13. ASPIRIN [Concomitant]
  14. TYLENOL [Concomitant]
  15. CHONDROITIN SULFATE + GLUCOSAMINE [Concomitant]
  16. CRESTOR [Concomitant]
  17. MULTI-VITAMINS [Concomitant]

REACTIONS (2)
  - INTERNATIONAL NORMALISED RATIO ABNORMAL [None]
  - TRANSIENT ISCHAEMIC ATTACK [None]
